FAERS Safety Report 7313361-0 (Version None)
Quarter: 2011Q1

REPORT INFORMATION
  Report Type: 
  Country: None (occurrence: None)
  Receive Date: 20110215
  Receipt Date: 20110215
  Transmission Date: 20110831
  Serious: Yes (Other)
  Sender: FDA-Public Use
  Company Number: None

PATIENT

DRUGS (3)
  1. MAXEIR [Concomitant]
  2. CETIRIZINE HYDROCHLORIDE [Suspect]
     Indication: SEASONAL ALLERGY
     Dosage: 1 PILL 10 MG/DAY IN AM EV DAY
     Dates: start: 20090901, end: 20100701
  3. ADVAIR DISKUS 100/50 [Concomitant]

REACTIONS (6)
  - DEPRESSION [None]
  - ASTHENIA [None]
  - DREAMY STATE [None]
  - VERTIGO [None]
  - HYPOAESTHESIA FACIAL [None]
  - PRODUCT SUBSTITUTION ISSUE [None]
